FAERS Safety Report 5237440-7 (Version None)
Quarter: 2007Q1

REPORT INFORMATION
  Report Type: 
  Country: None (occurrence: None)
  Receive Date: 20070213
  Receipt Date: 20070202
  Transmission Date: 20070707
  Serious: Yes (Disabling, Other)
  Sender: FDA-Public Use
  Company Number: FR-PFIZER INC-2007009841

PATIENT
  Age: 74 Year
  Sex: Male

DRUGS (3)
  1. LYRICA [Suspect]
     Indication: NEURALGIA
     Dosage: DAILY DOSE:150MG
  2. INDAPAMIDE [Concomitant]
  3. PARACETAMOL [Concomitant]

REACTIONS (3)
  - ABASIA [None]
  - DYSPNOEA [None]
  - PAIN [None]
